FAERS Safety Report 23586094 (Version 1)
Quarter: 2024Q1

REPORT INFORMATION
  Report Type: Report from Study
  Country: US (occurrence: US)
  Receive Date: 20240301
  Receipt Date: 20240301
  Transmission Date: 20240410
  Serious: Yes (Hospitalization, Other)
  Sender: FDA-Public Use
  Company Number: US-SUN PHARMACEUTICAL INDUSTRIES LTD-2024R1-426325

PATIENT
  Sex: Female

DRUGS (1)
  1. CLOZAPINE [Suspect]
     Active Substance: CLOZAPINE
     Indication: Schizoaffective disorder
     Dosage: UNK (50 MG IN THE MORNING AND 75 MG AT BEDTIME)
     Route: 065

REACTIONS (4)
  - Psychotic disorder [Unknown]
  - Neutropenia [Unknown]
  - Weight increased [Unknown]
  - Drooling [Unknown]
